FAERS Safety Report 9039287 (Version 1)
Quarter: 2013Q1

REPORT INFORMATION
  Report Type: Spontaneous
  Country: US (occurrence: None)
  Receive Date: 20130123
  Receipt Date: 20130123
  Transmission Date: 20140127
  Serious: Yes (Hospitalization)
  Sender: FDA-Public Use
  Company Number: None

PATIENT
  Age: 82 Year
  Sex: Female

DRUGS (2)
  1. WARFARIN [Suspect]
     Route: 048
  2. PLAVIX [Suspect]
     Route: 048

REACTIONS (2)
  - Haemoptysis [None]
  - International normalised ratio increased [None]
